FAERS Safety Report 6475048-6 (Version None)
Quarter: 2009Q4

REPORT INFORMATION
  Report Type: 
  Country: None (occurrence: None)
  Receive Date: 20091204
  Receipt Date: 20090417
  Transmission Date: 20100525
  Serious: Yes (Other)
  Sender: FDA-Public Use
  Company Number: US-ELI_LILLY_AND_COMPANY-US200903004009

PATIENT
  Age: 76 Year
  Sex: Female
  Weight: 40.816 kg

DRUGS (7)
  1. EVISTA [Suspect]
     Dates: start: 20040101, end: 20060101
  2. FORTEO [Suspect]
     Indication: OSTEOPOROSIS
     Dates: start: 20060801, end: 20080801
  3. ACTONEL [Concomitant]
  4. SYNTHROID [Concomitant]
     Dosage: 0.088 MG, UNK
  5. BENICAR [Concomitant]
     Dosage: 20 MG, UNK
  6. CALCIUM W/VITAMIN D /00188401/ [Concomitant]
  7. CENTRUM SILVER [Concomitant]

REACTIONS (6)
  - BONE DENSITY DECREASED [None]
  - DIARRHOEA [None]
  - DRUG INEFFECTIVE [None]
  - NEOPLASM MALIGNANT [None]
  - TOOTH DISORDER [None]
  - WEIGHT DECREASED [None]
